FAERS Safety Report 7863689-0 (Version None)
Quarter: 2011Q4

REPORT INFORMATION
  Report Type: 
  Country: None (occurrence: None)
  Receive Date: 20111027
  Receipt Date: 20101208
  Transmission Date: 20120403
  Serious: No
  Sender: FDA-Public Use
  Company Number: US-AMGEN-USASP2010008289

PATIENT
  Sex: Female

DRUGS (4)
  1. ENBREL [Suspect]
     Indication: PRODUCT USED FOR UNKNOWN INDICATION
     Dosage: 50 MG, QWK
     Route: 058
  2. METHOTREXATE [Concomitant]
     Dosage: 2.5 MG, UNK
     Route: 048
  3. PREDNISONE [Concomitant]
     Dosage: 10 MG, UNK
     Route: 048
  4. MILNACIPRAN [Concomitant]
     Dosage: 50 MG, UNK
     Route: 048

REACTIONS (1)
  - DRUG INEFFECTIVE [None]
